FAERS Safety Report 11528684 (Version 1)
Quarter: 2015Q3

REPORT INFORMATION
  Report Type: Spontaneous
  Country: US (occurrence: None)
  Receive Date: 20150918
  Receipt Date: 20150918
  Transmission Date: 20151125
  Serious: Yes (Other)
  Sender: FDA-Public Use
  Company Number: None

PATIENT
  Age: 80 Year
  Sex: Female
  Weight: 81.65 kg

DRUGS (17)
  1. ATORVASTATIN 40MG WATSON [Suspect]
     Active Substance: ATORVASTATIN
     Indication: BLOOD CHOLESTEROL
     Route: 048
     Dates: end: 20150706
  2. LOSARTAN POTASSIUM. [Concomitant]
     Active Substance: LOSARTAN POTASSIUM
  3. BILBERRY [Concomitant]
     Active Substance: BILBERRY
  4. OCUVITE [Concomitant]
     Active Substance: VITAMINS
  5. POLYETHYLENE GLYCOL [Concomitant]
     Active Substance: POLYETHYLENE GLYCOLS
  6. ASPIRIN. [Concomitant]
     Active Substance: ASPIRIN
  7. CQ10 [Concomitant]
     Active Substance: UBIDECARENONE
  8. BENADRYL [Concomitant]
     Active Substance: DIPHENHYDRAMINE HYDROCHLORIDE
  9. OSTEO BI-FLEX [Concomitant]
     Active Substance: CHONDROITIN SULFATE A\GLUCOSAMINE
  10. NEXIUM [Concomitant]
     Active Substance: ESOMEPRAZOLE MAGNESIUM
  11. MULTI VIT [Concomitant]
  12. OXYCODONE ACETAMINOPHEN [Concomitant]
     Active Substance: ACETAMINOPHEN\OXYCODONE HYDROCHLORIDE
  13. TEMAZEPAM. [Concomitant]
     Active Substance: TEMAZEPAM
  14. CINNAMON. [Concomitant]
     Active Substance: CINNAMON
  15. MELATONIN [Concomitant]
     Active Substance: MELATONIN
  16. LYRICA [Concomitant]
     Active Substance: PREGABALIN
  17. QUININE SULFATE. [Concomitant]
     Active Substance: QUININE SULFATE

REACTIONS (1)
  - Muscle spasms [None]
